FAERS Safety Report 7159747-9 (Version None)
Quarter: 2010Q4

REPORT INFORMATION
  Report Type: 
  Country: None (occurrence: None)
  Receive Date: 20101214
  Receipt Date: 20101022
  Transmission Date: 20110411
  Serious: No
  Sender: FDA-Public Use
  Company Number: US-ASTRAZENECA-2010SE50145

PATIENT
  Age: 63 Year
  Sex: Female

DRUGS (6)
  1. CRESTOR [Suspect]
     Route: 048
     Dates: start: 20101018, end: 20101018
  2. SYNTHROID [Concomitant]
  3. ATENOLOL [Concomitant]
  4. PRANDIN [Concomitant]
  5. FOSAMAX [Concomitant]
  6. RED RICE YEAST OTC [Concomitant]

REACTIONS (5)
  - AMNESIA [None]
  - DIZZINESS [None]
  - HALLUCINATION [None]
  - NAUSEA [None]
  - VOMITING [None]
